FAERS Safety Report 7357485 (Version 3)
Quarter: 2021Q1

REPORT INFORMATION
  Report Type: Spontaneous
  Country: FR (occurrence: FR)
  Receive Date: 20100416
  Receipt Date: 20210119
  Transmission Date: 20210420
  Serious: Yes (Disabling, Other)
  Sender: FDA-Public Use
  Company Number: FR-SANOFI-AVENTIS-200313242FR

PATIENT
  Age: 22 Year
  Sex: Female
  Weight: 45 kg

DRUGS (4)
  1. ALLERGENS NOS [Concomitant]
     Dosage: UNK
  2. ACETYLCYSTEINE. [Concomitant]
     Active Substance: ACETYLCYSTEINE
     Dosage: UNK UNK,QD
     Route: 048
     Dates: start: 20030820, end: 20030824
  3. KETEK [Suspect]
     Active Substance: TELITHROMYCIN
     Indication: BRONCHITIS
     Dosage: 400 MG,QD
     Route: 048
     Dates: start: 20030820, end: 20030823
  4. SOLUPRED [METHYLPREDNISOLONE] [Concomitant]
     Active Substance: METHYLPREDNISOLONE
     Dosage: UNK
     Route: 048
     Dates: start: 20030820, end: 20030824

REACTIONS (31)
  - Oropharyngeal pain [Recovered/Resolved]
  - Asthenia [Unknown]
  - Food intolerance [Unknown]
  - Dyspepsia [Unknown]
  - Transaminases increased [Unknown]
  - Autoimmune disorder [Unknown]
  - Spinal pain [Unknown]
  - Hypoaesthesia [Unknown]
  - Skin mass [Unknown]
  - Medication error [Unknown]
  - Angiopathy [Recovered/Resolved]
  - Abdominal discomfort [Unknown]
  - Muscle spasms [Recovered/Resolved]
  - Paraesthesia [Unknown]
  - Toothache [Recovered/Resolved]
  - Myalgia [Recovered/Resolved]
  - Hypersensitivity [Recovering/Resolving]
  - Dysbiosis [Unknown]
  - Skin burning sensation [Recovered/Resolved]
  - Arthralgia [Unknown]
  - Pruritus [Recovering/Resolving]
  - Glossodynia [Recovered/Resolved]
  - Burning sensation [Recovered/Resolved]
  - Vomiting [Unknown]
  - Mental disorder [Not Recovered/Not Resolved]
  - Enteritis [Unknown]
  - Swelling face [Recovered/Resolved]
  - Nausea [Unknown]
  - Ear pain [Recovered/Resolved]
  - Anger [Unknown]
  - Pain [Unknown]

NARRATIVE: CASE EVENT DATE: 2003
